FAERS Safety Report 6475334-X (Version None)
Quarter: 2009Q4

REPORT INFORMATION
  Report Type: 
  Country: None (occurrence: None)
  Receive Date: 20091204
  Receipt Date: 20090609
  Transmission Date: 20100525
  Serious: Yes (Other)
  Sender: FDA-Public Use
  Company Number: AU-ELI_LILLY_AND_COMPANY-AU200904003237

PATIENT

DRUGS (5)
  1. ZYPREXA [Suspect]
     Indication: ANXIETY
     Dosage: 2.5 MG, DAILY (1/D)
     Route: 064
     Dates: start: 20000101
  2. BLACKMORES PREGNANCY + BREAST-FEEDING FORMULA [Concomitant]
     Dosage: UNK, UNK
     Route: 064
     Dates: end: 20080729
  3. LOVAZA [Concomitant]
     Dosage: 1000 MG, UNK
     Route: 064
     Dates: end: 20080729
  4. CLINDAMYCIN [Concomitant]
     Indication: MASTITIS
     Dosage: UNK, UNK
     Route: 063
     Dates: start: 20080729
  5. FLUCLOXACILLIN [Concomitant]
     Indication: MASTITIS
     Route: 063
     Dates: start: 20080801

REACTIONS (5)
  - ABDOMINAL PAIN UPPER [None]
  - DRUG EXPOSURE DURING PREGNANCY [None]
  - DRUG EXPOSURE VIA BREAST MILK [None]
  - FEEDING DISORDER NEONATAL [None]
  - INSOMNIA [None]
